FAERS Safety Report 15035499 (Version 3)
Quarter: 2018Q3

REPORT INFORMATION
  Report Type: Report from Study
  Country: CA (occurrence: CA)
  Receive Date: 20180620
  Receipt Date: 20180907
  Transmission Date: 20181010
  Serious: Yes (Other)
  Sender: FDA-Public Use
  Company Number: CA-ROCHE-1954173

PATIENT
  Age: 53 Year
  Sex: Female

DRUGS (16)
  1. SYSTANE ULTRA [Concomitant]
     Active Substance: POLYETHYLENE GLYCOL 400\PROPYLENE GLYCOL
  2. ACETYLSALICYLIC ACID [Concomitant]
     Active Substance: ASPIRIN
  3. BENADRYL [Concomitant]
     Active Substance: DIPHENHYDRAMINE HYDROCHLORIDE
  4. DIPHENHYDRAMINE. [Concomitant]
     Active Substance: DIPHENHYDRAMINE
     Indication: PREMEDICATION
     Route: 042
  5. VOLTAREN [Concomitant]
     Active Substance: DICLOFENAC SODIUM
  6. FOLIC ACID. [Concomitant]
     Active Substance: FOLIC ACID
  7. PREDNISONE. [Concomitant]
     Active Substance: PREDNISONE
  8. ACETAMINOPHEN. [Concomitant]
     Active Substance: ACETAMINOPHEN
     Indication: PREMEDICATION
     Route: 048
  9. METHOTREXATE. [Concomitant]
     Active Substance: METHOTREXATE
  10. ATORVASTATIN [Concomitant]
     Active Substance: ATORVASTATIN
  11. RITUXAN [Suspect]
     Active Substance: RITUXIMAB
     Indication: RHEUMATOID ARTHRITIS
     Route: 042
     Dates: start: 20170606
  12. TRIDURAL [Concomitant]
     Active Substance: TRAMADOL HYDROCHLORIDE
  13. ULTRAM [Concomitant]
     Active Substance: TRAMADOL HYDROCHLORIDE
  14. VALSARTAN HCT [Concomitant]
     Active Substance: HYDROCHLOROTHIAZIDE\VALSARTAN
  15. ALLOPURINOL. [Concomitant]
     Active Substance: ALLOPURINOL
  16. METHYLPREDNISOLONE. [Concomitant]
     Active Substance: METHYLPREDNISOLONE
     Indication: PREMEDICATION
     Route: 042

REACTIONS (15)
  - Blood pressure increased [Recovered/Resolved]
  - Musculoskeletal stiffness [Unknown]
  - Feeling hot [Unknown]
  - Nausea [Unknown]
  - Headache [Unknown]
  - Episcleritis [Unknown]
  - Infusion related reaction [Unknown]
  - Pruritus [Unknown]
  - Bursitis [Unknown]
  - Erythema [Unknown]
  - Peripheral swelling [Unknown]
  - Insomnia [Unknown]
  - Infusion related reaction [Unknown]
  - Fatigue [Unknown]
  - Anxiety [Unknown]

NARRATIVE: CASE EVENT DATE: 20170606
